FAERS Safety Report 13289285 (Version 1)
Quarter: 2017Q1

REPORT INFORMATION
  Report Type: Spontaneous
  Country: US (occurrence: US)
  Receive Date: 20170302
  Receipt Date: 20170302
  Transmission Date: 20170428
  Serious: Yes (Other)
  Sender: FDA-Public Use
  Company Number: US-ARBOR PHARMACEUTICALS, LLC-US-2017ARB000260

PATIENT

DRUGS (2)
  1. EVEKEO [Suspect]
     Active Substance: AMPHETAMINE SULFATE
     Dosage: 10 MG, QD IN THE MORNING
     Route: 048
  2. EVEKEO [Suspect]
     Active Substance: AMPHETAMINE SULFATE
     Indication: ATTENTION DEFICIT/HYPERACTIVITY DISORDER
     Dosage: 5 MG BID

REACTIONS (6)
  - Anger [Unknown]
  - Thinking abnormal [Unknown]
  - Suicidal ideation [Unknown]
  - Drug dose omission [Unknown]
  - Hallucination, auditory [Unknown]
  - Mood swings [Unknown]

NARRATIVE: CASE EVENT DATE: 2016
